FAERS Safety Report 6173852-5 (Version None)
Quarter: 2009Q2

REPORT INFORMATION
  Report Type: 
  Country: None (occurrence: None)
  Receive Date: 20090429
  Receipt Date: 20090429
  Transmission Date: 20091009
  Serious: Yes (Life-Threatening, Hospitalization)
  Sender: FDA-Public Use
  Company Number: None

PATIENT
  Age: 69 Year
  Sex: Male
  Weight: 94 kg

DRUGS (2)
  1. MAXZIDE [Suspect]
     Indication: HYPERTENSION
     Dosage: 1 TABLET ONCE P.O.
     Route: 048
     Dates: start: 20090201
  2. MAXZIDE [Suspect]
     Indication: HYPERTENSION
     Dosage: 1 TABLET ONCE P.O.
     Route: 048
     Dates: start: 20090427

REACTIONS (8)
  - CARDIAC MURMUR [None]
  - CHILLS [None]
  - DIZZINESS [None]
  - FEELING HOT [None]
  - HYPOXIA [None]
  - NAUSEA [None]
  - TREMOR [None]
  - VOMITING [None]
